FAERS Safety Report 15461634 (Version 2)
Quarter: 2018Q4

REPORT INFORMATION
  Report Type: Report from Study
  Country: BR (occurrence: BR)
  Receive Date: 20181003
  Receipt Date: 20181024
  Transmission Date: 20190204
  Serious: Yes (Hospitalization, Other)
  Sender: FDA-Public Use
  Company Number: BR-SHIRE-BR201836913

PATIENT

DRUGS (1)
  1. ELAPRASE [Suspect]
     Active Substance: IDURSULFASE
     Indication: MUCOPOLYSACCHARIDOSIS II
     Dosage: 8 ML (0,5MG/KG)
     Route: 042

REACTIONS (11)
  - Ear infection [Unknown]
  - Pneumonia [Unknown]
  - Eating disorder [Unknown]
  - Product availability issue [Unknown]
  - Asthma [Unknown]
  - Seizure [Not Recovered/Not Resolved]
  - Bedridden [Unknown]
  - Inappropriate schedule of product administration [Unknown]
  - Gait disturbance [Unknown]
  - Sepsis [Unknown]
  - Weight increased [Unknown]

NARRATIVE: CASE EVENT DATE: 201712
